FAERS Safety Report 6453645-1 (Version None)
Quarter: 2009Q4

REPORT INFORMATION
  Report Type: 
  Country: None (occurrence: None)
  Receive Date: 20091124
  Receipt Date: 20091111
  Transmission Date: 20100525
  Serious: Yes (Other)
  Sender: FDA-Public Use
  Company Number: PHHY2009GB50161

PATIENT
  Age: 37 Year
  Sex: Female
  Weight: 50 kg

DRUGS (4)
  1. GLEEVEC [Suspect]
     Indication: CHRONIC MYELOID LEUKAEMIA
     Dosage: 400 MG, UNK
     Dates: start: 20090601
  2. GLEEVEC [Suspect]
     Dosage: 100 MG, UNK
     Dates: end: 20091020
  3. CHLORPHENIRAMINE MALEATE [Concomitant]
  4. OMEPRAZOLE [Concomitant]

REACTIONS (6)
  - ACANTHOSIS [None]
  - DERMATITIS EXFOLIATIVE [None]
  - DRUG HYPERSENSITIVITY [None]
  - EXFOLIATIVE RASH [None]
  - PARAKERATOSIS [None]
  - SKIN OEDEMA [None]
